FAERS Safety Report 10469612 (Version 3)
Quarter: 2015Q4

REPORT INFORMATION
  Report Type: Spontaneous
  Country: CA (occurrence: CA)
  Receive Date: 20140923
  Receipt Date: 20151127
  Transmission Date: 20160304
  Serious: Yes (Other)
  Sender: FDA-Public Use
  Company Number: CA-ROCHE-1465579

PATIENT
  Age: 60 Year
  Sex: Male

DRUGS (8)
  1. XOLAIR [Suspect]
     Active Substance: OMALIZUMAB
     Indication: ASTHMA
     Route: 058
     Dates: start: 20140312
  2. SYMBICORT [Concomitant]
     Active Substance: BUDESONIDE\FORMOTEROL FUMARATE DIHYDRATE
  3. VENTOLIN [Concomitant]
     Active Substance: ALBUTEROL SULFATE
  4. MICARDIS [Concomitant]
     Active Substance: TELMISARTAN
  5. XOLAIR [Suspect]
     Active Substance: OMALIZUMAB
     Route: 058
     Dates: start: 20140521
  6. XOLAIR [Suspect]
     Active Substance: OMALIZUMAB
     Dosage: ON 31/DEC/2014 AND 19/NOV/2015
     Route: 058
     Dates: start: 20140911
  7. SINGULAIR [Concomitant]
     Active Substance: MONTELUKAST SODIUM
  8. LIPITOR [Concomitant]
     Active Substance: ATORVASTATIN CALCIUM

REACTIONS (13)
  - Seasonal allergy [Unknown]
  - Pneumonia [Recovering/Resolving]
  - Heart rate increased [Unknown]
  - Weight increased [Unknown]
  - Wheezing [Unknown]
  - Oropharyngeal pain [Unknown]
  - Pruritus [Unknown]
  - Blood pressure systolic increased [Recovered/Resolved]
  - Bronchitis [Recovered/Resolved]
  - Asthma [Unknown]
  - Malaise [Unknown]
  - Rash [Unknown]
  - Nasopharyngitis [Recovering/Resolving]

NARRATIVE: CASE EVENT DATE: 20140521
